FAERS Safety Report 5991535-9 (Version None)
Quarter: 2008Q4

REPORT INFORMATION
  Report Type: 
  Country: None (occurrence: None)
  Receive Date: 20081211
  Receipt Date: 20080429
  Transmission Date: 20090506
  Serious: No
  Sender: FDA-Public Use
  Company Number: US-AMGEN-KDL277036

PATIENT
  Sex: Female

DRUGS (2)
  1. ENBREL [Suspect]
     Indication: PSORIATIC ARTHROPATHY
     Route: 058
     Dates: start: 20080411
  2. METHOTREXATE [Concomitant]
     Route: 058
     Dates: start: 20080101

REACTIONS (2)
  - JOINT SWELLING [None]
  - SKIN DISCOLOURATION [None]
